APPROVED DRUG PRODUCT: SIROLIMUS
Active Ingredient: SIROLIMUS
Strength: 1MG/ML
Dosage Form/Route: SOLUTION;ORAL
Application: A211406 | Product #001 | TE Code: AA
Applicant: APOTEX INC
Approved: Oct 22, 2019 | RLD: No | RS: No | Type: RX